FAERS Safety Report 8997713 (Version 1)
Quarter: 2013Q1

REPORT INFORMATION
  Report Type: Spontaneous
  Country: CN (occurrence: CN)
  Receive Date: 20130104
  Receipt Date: 20130104
  Transmission Date: 20140127
  Serious: Yes (Other)
  Sender: FDA-Public Use
  Company Number: CN-ROCHE-1176786

PATIENT
  Age: 78 Year
  Sex: Female

DRUGS (2)
  1. XELODA [Suspect]
     Indication: BREAST CANCER
     Route: 048
     Dates: start: 2010
  2. DOCETAXEL [Concomitant]
     Indication: BREAST CANCER
     Route: 041
     Dates: start: 2010

REACTIONS (1)
  - Neoplasm [Not Recovered/Not Resolved]
